FAERS Safety Report 20517354 (Version 1)
Quarter: 2022Q1

REPORT INFORMATION
  Report Type: Spontaneous
  Country: DK (occurrence: DK)
  Receive Date: 20220225
  Receipt Date: 20220225
  Transmission Date: 20220423
  Serious: Yes (Hospitalization)
  Sender: FDA-Public Use
  Company Number: None

PATIENT
  Age: 69 Year
  Sex: Male

DRUGS (1)
  1. ELIQUIS [Suspect]
     Active Substance: APIXABAN
     Indication: Thrombosis prophylaxis
     Dosage: 10 MILLIGRAM, DAILY DOSAGE
     Route: 048
     Dates: start: 20220108

REACTIONS (2)
  - Malaise [Unknown]
  - Fatigue [Unknown]

NARRATIVE: CASE EVENT DATE: 20220122
